FAERS Safety Report 5825681-7 (Version None)
Quarter: 2008Q3

REPORT INFORMATION
  Report Type: 
  Country: None (occurrence: None)
  Receive Date: 20080729
  Receipt Date: 20080721
  Transmission Date: 20090109
  Serious: Yes (Other)
  Sender: FDA-Public Use
  Company Number: US-ROCHE-572588

PATIENT
  Sex: Female
  Weight: 55.8 kg

DRUGS (4)
  1. CAPECITABINE [Suspect]
     Indication: BREAST CANCER
     Dosage: STRENGTH 500 MG  STRENGTH 150 MG (4 TABLETS DAILY)
     Route: 048
     Dates: end: 20080607
  2. CAPECITABINE [Suspect]
     Dosage: ONE WEEK ON ONE WEEK OFF
     Route: 048
  3. CAPECITABINE [Suspect]
     Route: 048
  4. TYKERB [Concomitant]

REACTIONS (3)
  - BREAST CANCER METASTATIC [None]
  - CENTRAL NERVOUS SYSTEM LESION [None]
  - EJECTION FRACTION DECREASED [None]
